FAERS Safety Report 4668532-9 (Version None)
Quarter: 2005Q2

REPORT INFORMATION
  Report Type: 
  Country: None (occurrence: None)
  Receive Date: 20050519
  Receipt Date: 20050506
  Transmission Date: 20051028
  Serious: Yes (Death)
  Sender: FDA-Public Use
  Company Number: 213662

PATIENT
  Age: 66 Year
  Sex: Female

DRUGS (5)
  1. RITUXAN [Suspect]
     Indication: NON-HODGKIN'S LYMPHOMA
     Dosage: 250 MG/M2, 1/WEEK,
     Dates: start: 20030923, end: 20030930
  2. ZEVALIN [Concomitant]
  3. ETOPOSIDE [Concomitant]
  4. CYCLOSPHAMIDE (CYCLOSPHAMIDE) [Concomitant]
  5. AUTOLOGOUS STEM CELLS (STEM CELLS) [Concomitant]

REACTIONS (8)
  - APHASIA [None]
  - DISEASE RECURRENCE [None]
  - DYSPHAGIA [None]
  - ENCEPHALITIS VIRAL [None]
  - NEUTROPENIA [None]
  - RESPIRATORY DISTRESS [None]
  - STEM CELL TRANSPLANT [None]
  - WEST NILE VIRAL INFECTION [None]
